FAERS Safety Report 8022780-9 (Version None)
Quarter: 2011Q4

REPORT INFORMATION
  Report Type: 
  Country: None (occurrence: None)
  Receive Date: 20111123
  Receipt Date: 20110914
  Transmission Date: 20120403
  Serious: No
  Sender: FDA-Public Use
  Company Number: 337458

PATIENT
  Age: 52 Year
  Sex: Female

DRUGS (1)
  1. VICTOZA [Suspect]
     Indication: TYPE 2 DIABETES MELLITUS
     Dosage: SUBCUTANEOUS
     Route: 058
     Dates: end: 20110301

REACTIONS (6)
  - DECREASED APPETITE [None]
  - SLUGGISHNESS [None]
  - DYSPEPSIA [None]
  - NAUSEA [None]
  - IRRITABILITY [None]
  - DIZZINESS [None]
